FAERS Safety Report 8257075-1 (Version None)
Quarter: 2012Q2

REPORT INFORMATION
  Report Type: 
  Country: None (occurrence: None)
  Receive Date: 20120403
  Receipt Date: 20120326
  Transmission Date: 20120825
  Serious: Yes (Other)
  Sender: FDA-Public Use
  Company Number: ES-GLAXOSMITHKLINE-B0792923A

PATIENT
  Age: 20 Year
  Sex: Male

DRUGS (1)
  1. PAROXETINE [Suspect]
     Indication: MAJOR DEPRESSION
     Dosage: 20MG PER DAY

REACTIONS (5)
  - ACTIVATED PARTIAL THROMBOPLASTIN TIME PROLONGED [None]
  - LOWER GASTROINTESTINAL HAEMORRHAGE [None]
  - HEADACHE [None]
  - TREMOR [None]
  - INTERNATIONAL NORMALISED RATIO INCREASED [None]
